FAERS Safety Report 5465762-3 (Version None)
Quarter: 2007Q3

REPORT INFORMATION
  Report Type: 
  Country: None (occurrence: None)
  Receive Date: 20070924
  Receipt Date: 20070919
  Transmission Date: 20080115
  Serious: Yes (Life-Threatening, Hospitalization)
  Sender: FDA-Public Use
  Company Number: B0441134A

PATIENT
  Age: 45 Year
  Sex: Female
  Weight: 63 kg

DRUGS (20)
  1. ARTIST [Suspect]
     Indication: HYPERTENSION
     Dosage: 10MG VARIABLE DOSE
     Route: 048
     Dates: start: 20060724
  2. ZYLORIC [Suspect]
     Dosage: 100MG PER DAY
     Route: 048
     Dates: start: 20060801, end: 20061001
  3. ALLOZYM [Suspect]
     Dosage: 100MG PER DAY
     Route: 048
     Dates: start: 20060831, end: 20060918
  4. ADALAT [Suspect]
     Indication: HYPERTENSION
     Route: 048
     Dates: start: 20060720, end: 20061023
  5. LASIX [Suspect]
     Dosage: 20MG PER DAY
     Route: 048
     Dates: start: 20060724, end: 20061003
  6. FUROSEMIDE [Suspect]
     Dosage: 20MG PER DAY
     Route: 048
     Dates: start: 20060831, end: 20060918
  7. DOXAZOSIN MESYLATE [Suspect]
     Indication: HYPERTENSION
     Route: 048
     Dates: start: 20060724, end: 20061003
  8. CARBADOGEN [Suspect]
     Indication: HYPERTENSION
     Dosage: 4MG PER DAY
     Route: 048
     Dates: start: 20060831, end: 20060918
  9. CORINAEL [Suspect]
     Indication: HYPERTENSION
     Dosage: 10MG THREE TIMES PER DAY
     Route: 048
     Dates: start: 20060831, end: 20060918
  10. DIOVAN [Suspect]
     Indication: HYPERTENSION
     Route: 048
     Dates: start: 20060731
  11. ARGAMATE [Concomitant]
     Dosage: 50G PER DAY
     Route: 048
     Dates: start: 20060720
  12. KALIMATE [Concomitant]
     Route: 048
     Dates: start: 20060818
  13. FERO-GRADUMET [Concomitant]
     Route: 048
     Dates: start: 20060814, end: 20060918
  14. JUSO-JO [Concomitant]
     Indication: METABOLIC ACIDOSIS
     Dosage: 1.5G PER DAY
     Route: 048
     Dates: start: 20060814
  15. PREDONINE [Concomitant]
     Indication: DRUG HYPERSENSITIVITY
     Route: 048
     Dates: start: 20060919, end: 20061001
  16. DIART [Concomitant]
     Dosage: 120MG PER DAY
     Route: 048
     Dates: start: 20061004, end: 20061019
  17. AVELOX [Concomitant]
     Indication: INFECTION
     Dosage: 400MG PER DAY
     Route: 048
     Dates: start: 20061012, end: 20061017
  18. MEROPEN [Concomitant]
     Indication: INFECTION
     Dosage: .5G PER DAY
     Route: 042
     Dates: start: 20060930, end: 20061011
  19. EPOGEN [Concomitant]
     Route: 058
     Dates: start: 20060721, end: 20061024
  20. ESPO [Concomitant]
     Dosage: 12IU PER DAY
     Route: 058
     Dates: start: 20060831, end: 20060926

REACTIONS (12)
  - AGRANULOCYTOSIS [None]
  - DRUG HYPERSENSITIVITY [None]
  - GRANULOCYTOPENIA [None]
  - HEPATIC FUNCTION ABNORMAL [None]
  - HOT FLUSH [None]
  - HYPERTENSION [None]
  - INFECTION [None]
  - OEDEMA [None]
  - PRURITUS GENERALISED [None]
  - PYREXIA [None]
  - RENAL FAILURE [None]
  - WHITE BLOOD CELL COUNT INCREASED [None]
